FAERS Safety Report 8764228 (Version 2)
Quarter: 2012Q4

REPORT INFORMATION
  Report Type: 
  Country: CA (occurrence: CA)
  Receive Date: 20120829
  Receipt Date: 20121008
  Transmission Date: 20130627
  Serious: Yes (Other)
  Sender: FDA-Public Use
  Company Number: CA-ELI_LILLY_AND_COMPANY-CA201208007721

PATIENT
  Age: 79 Year
  Sex: Male

DRUGS (4)
  1. FORTEO [Suspect]
     Dosage: 20 ug, qd
     Route: 058
     Dates: start: 20110910
  2. VITAMIN D NOS [Concomitant]
  3. VITALUX [Concomitant]
  4. CALCIUM [Concomitant]

REACTIONS (2)
  - Muscle rupture [Recovered/Resolved]
  - Spinal fracture [Not Recovered/Not Resolved]
